FAERS Safety Report 11081516 (Version 5)
Quarter: 2015Q2

REPORT INFORMATION
  Report Type: Spontaneous
  Country: US (occurrence: US)
  Receive Date: 20150501
  Receipt Date: 20150609
  Transmission Date: 20150821
  Serious: Yes (Hospitalization, Other)
  Sender: FDA-Public Use
  Company Number: US-GLAXOSMITHKLINE-US2015GSK047580

PATIENT
  Age: 6 Month
  Sex: Male

DRUGS (2)
  1. FLOLAN [Suspect]
     Active Substance: EPOPROSTENOL SODIUM
     Indication: PULMONARY HYPERTENSION
     Dosage: 12 NG/KG/MIN; CONCENTRATION 3,000NG/ML; PUMP RATE 28ML/DAY; VIAL STRENGTH 0.5
     Route: 042
     Dates: start: 20141202
  2. FLOLAN [Suspect]
     Active Substance: EPOPROSTENOL SODIUM
     Dosage: UNK, U
     Route: 042

REACTIONS (5)
  - Gastrostomy [Recovered/Resolved]
  - Skin infection [Unknown]
  - Device related infection [Unknown]
  - Dermatitis contact [Unknown]
  - Gastrostomy failure [Unknown]

NARRATIVE: CASE EVENT DATE: 20150421
